FAERS Safety Report 18138225 (Version 1)
Quarter: 2020Q3

REPORT INFORMATION
  Report Type: Other
  Country: US (occurrence: US)
  Receive Date: 20200812
  Receipt Date: 20200812
  Transmission Date: 20201103
  Serious: Yes (Hospitalization, Other)
  Sender: FDA-Public Use
  Company Number: US-ROCHE-2654934

PATIENT
  Age: 50 Year
  Sex: Female
  Weight: 76.73 kg

DRUGS (13)
  1. KEPPRA [Concomitant]
     Active Substance: LEVETIRACETAM
     Indication: SEIZURE
  2. FLEXERIL [Concomitant]
     Active Substance: CYCLOBENZAPRINE HYDROCHLORIDE
     Indication: MUSCLE SPASMS
  3. ALBUTEROL. [Concomitant]
     Active Substance: ALBUTEROL
  4. PROAIR HFA [Concomitant]
     Active Substance: ALBUTEROL SULFATE
     Indication: CHRONIC OBSTRUCTIVE PULMONARY DISEASE
  5. LAMICTAL [Concomitant]
     Active Substance: LAMOTRIGINE
  6. NEURONTIN [Concomitant]
     Active Substance: GABAPENTIN
     Indication: SEIZURE
  7. TOPAMAX [Concomitant]
     Active Substance: TOPIRAMATE
     Indication: HEADACHE
  8. VALIUM [Suspect]
     Active Substance: DIAZEPAM
     Indication: ANXIETY
     Route: 065
  9. LAMICTAL [Concomitant]
     Active Substance: LAMOTRIGINE
  10. CYMBALTA [Concomitant]
     Active Substance: DULOXETINE HYDROCHLORIDE
  11. TIZANIDINE. [Concomitant]
     Active Substance: TIZANIDINE
  12. PHENERGAN [Concomitant]
     Active Substance: PROMETHAZINE HYDROCHLORIDE
  13. OCREVUS [Suspect]
     Active Substance: OCRELIZUMAB
     Indication: PRIMARY PROGRESSIVE MULTIPLE SCLEROSIS
     Route: 065
     Dates: start: 201808, end: 201903

REACTIONS (8)
  - Multiple sclerosis relapse [Not Recovered/Not Resolved]
  - Pneumonia [Recovered/Resolved]
  - Coma [Recovered/Resolved]
  - Tinnitus [Not Recovered/Not Resolved]
  - Sepsis [Recovered/Resolved]
  - Brain oedema [Recovered/Resolved]
  - Visual impairment [Recovered/Resolved]
  - Headache [Not Recovered/Not Resolved]

NARRATIVE: CASE EVENT DATE: 202007
